FAERS Safety Report 23426665 (Version 3)
Quarter: 2024Q1

REPORT INFORMATION
  Report Type: Spontaneous
  Country: US (occurrence: US)
  Receive Date: 20240122
  Receipt Date: 20240212
  Transmission Date: 20240410
  Serious: Yes (Death, Hospitalization)
  Sender: FDA-Public Use
  Company Number: US-BoehringerIngelheim-2024-BI-003541

PATIENT
  Age: 80 Year
  Sex: Female

DRUGS (1)
  1. COMBIVENT RESPIMAT [Suspect]
     Active Substance: ALBUTEROL SULFATE\IPRATROPIUM BROMIDE
     Indication: Chronic obstructive pulmonary disease
     Dosage: LOT NO: 301903C,301914A,205301C,301903B,302610,201122A,106874A

REACTIONS (2)
  - Chronic obstructive pulmonary disease [Fatal]
  - Product delivery mechanism issue [Unknown]

NARRATIVE: CASE EVENT DATE: 20231201
